FAERS Safety Report 22036084 (Version 3)
Quarter: 2023Q2

REPORT INFORMATION
  Report Type: Spontaneous
  Country: US (occurrence: US)
  Receive Date: 20230224
  Receipt Date: 20230520
  Transmission Date: 20230722
  Serious: No
  Sender: FDA-Public Use
  Company Number: US-002147023-NVSC2023US042073

PATIENT
  Sex: Female

DRUGS (2)
  1. COSENTYX [Suspect]
     Active Substance: SECUKINUMAB
     Indication: Psoriasis
     Dosage: UNK (FIRST DOSE)
     Route: 065
  2. COSENTYX [Suspect]
     Active Substance: SECUKINUMAB
     Indication: Psoriatic arthropathy
     Dosage: UNK- (SECOND DOSE)
     Route: 065

REACTIONS (6)
  - Drug hypersensitivity [Unknown]
  - Skin exfoliation [Unknown]
  - Swelling face [Unknown]
  - Swelling of eyelid [Unknown]
  - Rash [Unknown]
  - Myalgia [Unknown]
